FAERS Safety Report 19471874 (Version 1)
Quarter: 2021Q2

REPORT INFORMATION
  Report Type: Spontaneous
  Country: US (occurrence: US)
  Receive Date: 20210629
  Receipt Date: 20210629
  Transmission Date: 20210717
  Serious: Yes (Hospitalization, Other)
  Sender: FDA-Public Use
  Company Number: US-GLAXOSMITHKLINE-US2021137767

PATIENT
  Sex: Female

DRUGS (1)
  1. TRELEGY ELLIPTA [Suspect]
     Active Substance: FLUTICASONE FUROATE\UMECLIDINIUM BROMIDE\VILANTEROL TRIFENATATE
     Indication: PRODUCT USED FOR UNKNOWN INDICATION
     Dosage: UNK (TRELEGY 100)
     Dates: start: 20180124

REACTIONS (3)
  - Cerebrovascular accident [Not Recovered/Not Resolved]
  - Atrial fibrillation [Unknown]
  - Speech disorder [Unknown]

NARRATIVE: CASE EVENT DATE: 20210428
